FAERS Safety Report 7441014-7 (Version None)
Quarter: 2011Q2

REPORT INFORMATION
  Report Type: 
  Country: None (occurrence: None)
  Receive Date: 20110427
  Receipt Date: 20091113
  Transmission Date: 20111010
  Serious: Yes (Hospitalization, Other)
  Sender: FDA-Public Use
  Company Number: US-BAYER-200939258NA

PATIENT
  Age: 65 Year
  Sex: Male
  Weight: 108 kg

DRUGS (29)
  1. LISINOPRIL [Concomitant]
     Dosage: 40 MG, QD
     Route: 048
  2. ANCEF [Concomitant]
     Dosage: 1 G, UNK
     Route: 042
     Dates: start: 20050519
  3. KEFZOL [Concomitant]
     Dosage: 2 MG, UNK
     Route: 042
     Dates: start: 20050812
  4. LASIX [Concomitant]
     Dosage: UNK
     Route: 042
     Dates: start: 20050812
  5. HYDROCHLOROTHIAZIDE [Concomitant]
     Dosage: 25 MG, QD
     Route: 048
  6. KEFZOL [Concomitant]
     Dosage: PRIME
     Dates: start: 20050812
  7. INSULIN [INSULIN] [Concomitant]
     Dosage: UNK
     Route: 042
     Dates: start: 20050812
  8. TRASYLOL [Suspect]
     Indication: CORONARY ARTERY BYPASS
     Dosage: 200ML, THEN50ML/HR INFUSION
     Route: 042
     Dates: start: 20050811, end: 20050812
  9. NPH INSULIN [Concomitant]
     Dosage: 12 UNITS EVERY MORNING, 24 UNITS EVERY NIGHT
  10. HEPARIN [Concomitant]
     Dosage: 10, PRIME
     Dates: start: 20050812
  11. ACETYLSALICYLIC ACID SRT [Concomitant]
     Dosage: 325 MG, QD
  12. AMIODARONE [Concomitant]
  13. SIMVASTATIN [Concomitant]
     Dosage: 40 MG, QD
     Route: 048
  14. VICODIN [Concomitant]
     Dosage: 20 MG, QD
  15. METFORMIN [Concomitant]
     Dosage: 1000 MG, BID
     Route: 048
  16. METOPROLOL [Concomitant]
     Dosage: 75 MG, BID
     Route: 048
  17. GLIPIZIDE [Concomitant]
     Dosage: 1 MG, QD
     Route: 048
  18. ISOSORBIDE [ISOSORBIDE] [Concomitant]
     Dosage: 40 MG, TID
     Route: 048
  19. HYDROCHLOROTHIAZIDE [Concomitant]
  20. TOLAZAMIDE [Concomitant]
     Dosage: 500 MG, BID
     Route: 048
  21. HEPARIN [Concomitant]
     Dosage: UNK
     Route: 042
     Dates: start: 20050812
  22. LIDOCAINE [Concomitant]
     Dosage: UNK
     Route: 042
     Dates: start: 20050812
  23. MIDAZOLAM [Concomitant]
     Dosage: 4 MG, UNK
     Route: 042
     Dates: start: 20050812
  24. ALBUMIN [ALBUMEN] [Concomitant]
     Dosage: 25
     Route: 042
     Dates: start: 20050812
  25. VERSED [Concomitant]
     Dosage: 2 MG, UNK
     Route: 042
     Dates: start: 20050812
  26. ISOFLURANE [Concomitant]
     Dosage: VAPOR
     Dates: start: 20050812
  27. FENTANYL [Concomitant]
     Dosage: UNK
     Route: 042
     Dates: start: 20050812
  28. PROTAMINE SULFATE [Concomitant]
     Dosage: UNK
     Route: 042
     Dates: start: 20050812
  29. PROPOFOL [Concomitant]
     Dosage: 30MG/KG/MINUNK
     Route: 042
     Dates: start: 20050812

REACTIONS (11)
  - RENAL FAILURE [None]
  - UNEVALUABLE EVENT [None]
  - INJURY [None]
  - EMOTIONAL DISTRESS [None]
  - FEAR [None]
  - ANHEDONIA [None]
  - RENAL INJURY [None]
  - STRESS [None]
  - ANXIETY [None]
  - PAIN [None]
  - DEPRESSION [None]
